FAERS Safety Report 8596332-6 (Version None)
Quarter: 2012Q3

REPORT INFORMATION
  Report Type: 
  Country: None (occurrence: None)
  Receive Date: 20120815
  Receipt Date: 20120813
  Transmission Date: 20120928
  Serious: Yes (Life-Threatening, Congenital Anomaly, Other)
  Sender: FDA-Public Use
  Company Number: FR-ABBOTT-11P-056-0870937-00

PATIENT
  Sex: Male

DRUGS (3)
  1. RETROVIR [Suspect]
     Indication: MATERNAL EXPOSURE TIMING UNSPECIFIED
     Route: 064
  2. EPZICOM [Suspect]
     Indication: MATERNAL EXPOSURE TIMING UNSPECIFIED
     Route: 064
  3. KALETRA [Suspect]
     Indication: MATERNAL EXPOSURE TIMING UNSPECIFIED
     Route: 064

REACTIONS (12)
  - ORAL CANDIDIASIS [None]
  - OESOPHAGEAL ATRESIA [None]
  - DYSPHONIA [None]
  - DROOLING [None]
  - FUNGAL INFECTION [None]
  - REGURGITATION [None]
  - COUGH [None]
  - FOETAL EXPOSURE DURING PREGNANCY [None]
  - VENOUS THROMBOSIS LIMB [None]
  - FOETAL HEART RATE DISORDER [None]
  - OXYGEN SATURATION DECREASED [None]
  - TRACHEOMALACIA [None]
